FAERS Safety Report 9456292 (Version 1)
Quarter: 2013Q3

REPORT INFORMATION
  Report Type: Spontaneous
  Country: US (occurrence: US)
  Receive Date: 20130813
  Receipt Date: 20130813
  Transmission Date: 20140515
  Serious: Yes (Death)
  Sender: FDA-Public Use
  Company Number: US-GLAXOSMITHKLINE-A1036603A

PATIENT
  Age: 54 Year
  Sex: Male

DRUGS (7)
  1. LOVAZA [Suspect]
     Indication: CARDIAC DISORDER
     Dosage: 2G TWICE PER DAY
     Route: 048
     Dates: start: 2010
  2. PRAVASTATIN [Concomitant]
  3. ZETIA [Concomitant]
  4. PLAVIX [Concomitant]
  5. PEPCID [Concomitant]
  6. CINNAMON [Concomitant]
  7. ECOTRIN [Concomitant]

REACTIONS (3)
  - Death [Fatal]
  - Fall [Unknown]
  - Off label use [Unknown]
